FAERS Safety Report 5083165-0 (Version None)
Quarter: 2006Q3

REPORT INFORMATION
  Report Type: 
  Country: None (occurrence: None)
  Receive Date: 20060818
  Receipt Date: 20060725
  Transmission Date: 20061208
  Serious: Yes (Death, Life-Threatening)
  Sender: FDA-Public Use
  Company Number: US-RB-3637-2006

PATIENT
  Sex: Female
  Weight: 152.54 kg

DRUGS (15)
  1. SUBOXONE [Suspect]
     Indication: PAIN
     Route: 060
     Dates: start: 20060605, end: 20060605
  2. SUBOXONE [Suspect]
     Route: 060
     Dates: start: 20060606, end: 20060606
  3. SUBOXONE [Suspect]
     Route: 060
     Dates: start: 20060607, end: 20060608
  4. MEDICINALPRODUCT NOT SPECIFIED BY SENDER [Concomitant]
     Indication: PAIN
  5. MEDICINALPRODUCT NOT SPECIFIED BY SENDER [Concomitant]
     Indication: ANTIDEPRESSANT DRUG CLEARANCE
  6. MEDICINALPRODUCT NOT SPECIFIED BY SENDER [Concomitant]
  7. LEVOTHYROXINE SODIUM [Concomitant]
  8. LISINOPRIL [Concomitant]
  9. QUETIAPINE FUMARATE [Concomitant]
     Indication: ANTIPSYCHOTIC DRUG LEVEL
  10. CARBAMAZEPINE [Concomitant]
     Indication: PAIN
  11. RISPERIDONE [Concomitant]
     Indication: ANTIPSYCHOTIC DRUG LEVEL
  12. MEDICINALPRODUCT NOT SPECIFIED BY SENDER [Concomitant]
  13. TOPIRAMATE [Concomitant]
  14. CIPROFLOXACIN [Concomitant]
  15. TRAMADOL HCL [Concomitant]

REACTIONS (4)
  - DEATH [None]
  - FEELING JITTERY [None]
  - PSYCHOMOTOR HYPERACTIVITY [None]
  - SOMNOLENCE [None]
